FAERS Safety Report 19815578 (Version 1)
Quarter: 2021Q3

REPORT INFORMATION
  Report Type: Spontaneous
  Country: LV (occurrence: LV)
  Receive Date: 20210910
  Receipt Date: 20210910
  Transmission Date: 20211014
  Serious: Yes (Death, Hospitalization)
  Sender: FDA-Public Use
  Company Number: LV-BAYER-2021-204880

PATIENT
  Age: 30 Year
  Sex: Female
  Weight: 60 kg

DRUGS (3)
  1. COMIRNATY [Suspect]
     Active Substance: TOZINAMERAN
     Indication: IMMUNISATION
     Dosage: THE 1ST IMMUNIZATION DOSE
     Route: 030
     Dates: start: 20210525, end: 20210525
  2. COMIRNATY [Suspect]
     Active Substance: TOZINAMERAN
     Indication: IMMUNISATION
     Dosage: THE 2ND IMMUNIZATION DOSE
     Route: 030
     Dates: start: 20210615, end: 20210615
  3. YASMINELLE [Suspect]
     Active Substance: DROSPIRENONE
     Indication: CONTRACEPTION
     Dosage: UNK
     Route: 048
     Dates: start: 20210325

REACTIONS (7)
  - Cyanosis [Unknown]
  - Body temperature increased [Recovered/Resolved]
  - Fatigue [Recovered/Resolved]
  - Pulmonary embolism [Fatal]
  - Dyspnoea [Unknown]
  - Syncope [Unknown]
  - Anxiety [Unknown]

NARRATIVE: CASE EVENT DATE: 20210525
